FAERS Safety Report 8608198-6 (Version None)
Quarter: 2012Q3

REPORT INFORMATION
  Report Type: 
  Country: None (occurrence: None)
  Receive Date: 20120821
  Receipt Date: 20120816
  Transmission Date: 20120928
  Serious: No
  Sender: FDA-Public Use
  Company Number: US-PFIZER INC-2012201210

PATIENT

DRUGS (1)
  1. QUINAPRIL HCL [Suspect]
     Dosage: 5 MG DAILY, 1/2 TABLET AT A TIME

REACTIONS (2)
  - FEELING ABNORMAL [None]
  - ACTIVITIES OF DAILY LIVING IMPAIRED [None]
